FAERS Safety Report 10637252 (Version 1)
Quarter: 2014Q4

REPORT INFORMATION
  Report Type: Spontaneous
  Country: US (occurrence: None)
  Receive Date: 20141204
  Receipt Date: 20141204
  Transmission Date: 20150529
  Serious: Yes (Disabling)
  Sender: FDA-Public Use
  Company Number: None

PATIENT
  Age: 52 Year
  Sex: Female
  Weight: 127.01 kg

DRUGS (1)
  1. LEVOFLOXACIN. [Suspect]
     Active Substance: LEVOFLOXACIN
     Indication: CELLULITIS
     Dosage: INTO A VEIN
     Dates: start: 20140112, end: 20140205

REACTIONS (6)
  - Neuropathy peripheral [None]
  - Pain [None]
  - Balance disorder [None]
  - Tinnitus [None]
  - Ataxia [None]
  - Impaired work ability [None]

NARRATIVE: CASE EVENT DATE: 20140113
